FAERS Safety Report 7350242-0 (Version None)
Quarter: 2011Q1

REPORT INFORMATION
  Report Type: 
  Country: None (occurrence: None)
  Receive Date: 20110303
  Receipt Date: 20110221
  Transmission Date: 20110831
  Serious: No
  Sender: FDA-Public Use
  Company Number: 2011-00064

PATIENT
  Age: 62 Year
  Sex: Female
  Weight: 69.8539 kg

DRUGS (1)
  1. ZICAM COLD REMEDY ORAL MIST [Suspect]
     Dosage: QD X 1 DAY
     Dates: start: 20110221, end: 20110221

REACTIONS (1)
  - AGEUSIA [None]
